FAERS Safety Report 7994351-1 (Version None)
Quarter: 2011Q4

REPORT INFORMATION
  Report Type: 
  Country: None (occurrence: None)
  Receive Date: 20111220
  Receipt Date: 20110620
  Transmission Date: 20120403
  Serious: No
  Sender: FDA-Public Use
  Company Number: US-GLAXOSMITHKLINE-A0932051A

PATIENT
  Age: 53 Year
  Sex: Male

DRUGS (5)
  1. HYDROCHLOROTHIAZIDE [Concomitant]
  2. LOTREL [Concomitant]
  3. SORIATANE [Suspect]
     Indication: PSORIASIS
     Dosage: 1CAP SINGLE DOSE
     Route: 048
     Dates: start: 20110607, end: 20110607
  4. METHYLDOPA [Concomitant]
  5. NIASPAN [Concomitant]

REACTIONS (6)
  - FATIGUE [None]
  - SOMNOLENCE [None]
  - HEADACHE [None]
  - CHILLS [None]
  - PAIN [None]
  - INFLUENZA LIKE ILLNESS [None]
